FAERS Safety Report 23078658 (Version 7)
Quarter: 2025Q4

REPORT INFORMATION
  Report Type: Spontaneous
  Country: EU (occurrence: EU)
  Receive Date: 20231018
  Receipt Date: 20251111
  Transmission Date: 20260118
  Serious: Yes (Hospitalization, Other)
  Sender: ABBVIE
  Company Number: EU-002147023-NVSC2023DE156439

PATIENT
  Sex: Female
  Weight: 65 kg

DRUGS (9)
  1. PREDNISOLONE [Suspect]
     Active Substance: PREDNISOLONE
     Indication: Product used for unknown indication
     Route: 065
  2. BENSERAZIDE HYDROCHLORIDE\LEVODOPA [Concomitant]
     Active Substance: BENSERAZIDE HYDROCHLORIDE\LEVODOPA
     Indication: Multiple sclerosis
     Dosage: 1 DOSAGE FORM, QD (0-0-1)
     Route: 048
  3. CHOLECALCIFEROL [Concomitant]
     Active Substance: CHOLECALCIFEROL
     Indication: Product used for unknown indication
     Dosage: 1 DOSAGE FORM, QW (20000)
     Route: 065
  4. PRAMIPEXOLE [Concomitant]
     Active Substance: PRAMIPEXOLE
     Indication: Depression
     Dosage: 1 DOSAGE FORM, QD (1-0-0)
     Route: 048
  5. PANTOPRAZOLE [Concomitant]
     Active Substance: PANTOPRAZOLE
     Indication: Product used for unknown indication
     Dosage: 1 DOSAGE FORM, BID (40, 1-0-1)
     Route: 065
  6. METAMIZOLE [Concomitant]
     Active Substance: METAMIZOLE
     Indication: Product used for unknown indication
     Dosage: 2 DOSAGE FORM, TID (500, 2-2-2)
     Route: 065
  7. FLUTICASONE PROPIONATE\SALMETEROL XINAFOATE [Concomitant]
     Active Substance: FLUTICASONE PROPIONATE\SALMETEROL XINAFOATE
     Indication: Asthma
     Dosage: 1 DOSAGE FORM, BID (1-0-1)
     Route: 050
  8. TIZANIDINE [Concomitant]
     Active Substance: TIZANIDINE
     Indication: Product used for unknown indication
     Dosage: 4 DOSAGE FORM, QD (2-1-1)
     Route: 065
  9. KESIMPTA [Suspect]
     Active Substance: OFATUMUMAB
     Indication: Multiple sclerosis
     Dosage: 20 MG, Q4W?LAST ADMIN DATE: 2023?DOSE FORM: SOLUTION FOR INJECTION IN PRE-FILLED PEN
     Route: 065
     Dates: start: 202301

REACTIONS (6)
  - Post procedural haematoma [Recovering/Resolving]
  - Postoperative abscess [Unknown]
  - Impaired healing [Recovering/Resolving]
  - Bacterial sepsis [Recovering/Resolving]
  - COVID-19 [Unknown]
  - Peritonitis [Unknown]

NARRATIVE: CASE EVENT DATE: 20230101
